FAERS Safety Report 15017532 (Version 1)
Quarter: 2018Q2

REPORT INFORMATION
  Report Type: Spontaneous
  Country: US (occurrence: US)
  Receive Date: 20180615
  Receipt Date: 20180615
  Transmission Date: 20180711
  Serious: No
  Sender: FDA-Public Use
  Company Number: US-GALDERMA-US17008776

PATIENT
  Sex: Female

DRUGS (10)
  1. DIFFERIN GEL [Suspect]
     Active Substance: ADAPALENE
     Indication: ACNE
     Dosage: 0.1%
     Route: 061
  2. POND MOISTURIZER AND DARK SPOT CORRECTOR [Concomitant]
     Indication: PRODUCT USED FOR UNKNOWN INDICATION
  3. AFRICAN BLACK SOAP [Concomitant]
     Indication: PRODUCT USED FOR UNKNOWN INDICATION
  4. COCOA BUTTER [Concomitant]
     Active Substance: COCOA BUTTER
     Indication: PRODUCT USED FOR UNKNOWN INDICATION
  5. CETAPHIL DERMACONTROL FOAM WASH [Concomitant]
     Active Substance: COSMETICS
     Indication: PRODUCT USED FOR UNKNOWN INDICATION
     Route: 061
  6. CETAPHIL MOISTURIZER AND FACIAL CLEANSER, UNSPECIFIED [Concomitant]
     Indication: PRODUCT USED FOR UNKNOWN INDICATION
     Route: 061
  7. WITCH HAZEL. [Concomitant]
     Active Substance: WITCH HAZEL
     Indication: PRODUCT USED FOR UNKNOWN INDICATION
  8. VITAMIN E [Concomitant]
     Active Substance: .ALPHA.-TOCOPHEROL
     Indication: PRODUCT USED FOR UNKNOWN INDICATION
  9. ALOE [Concomitant]
     Active Substance: ALOE
     Indication: PRODUCT USED FOR UNKNOWN INDICATION
  10. TEA TREE OIL. [Concomitant]
     Active Substance: TEA TREE OIL
     Indication: PRODUCT USED FOR UNKNOWN INDICATION

REACTIONS (4)
  - Skin burning sensation [Unknown]
  - Skin irritation [Unknown]
  - Skin exfoliation [Unknown]
  - Erythema [Unknown]
